FAERS Safety Report 16594258 (Version 4)
Quarter: 2025Q4

REPORT INFORMATION
  Report Type: Spontaneous
  Country: EU (occurrence: EU)
  Receive Date: 20190718
  Receipt Date: 20251124
  Transmission Date: 20260118
  Serious: Yes (Other)
  Sender: NOVARTIS
  Company Number: PHHY2019PL162598

PATIENT
  Age: 9 Year
  Sex: Male

DRUGS (19)
  1. CIPROFLOXACIN [Suspect]
     Active Substance: CIPROFLOXACIN
     Indication: BK virus infection
     Dosage: UNK
     Route: 065
  2. CIPROFLOXACIN [Suspect]
     Active Substance: CIPROFLOXACIN
     Indication: Prophylaxis against graft versus host disease
  3. MYCOPHENOLATE MOFETIL [Suspect]
     Active Substance: MYCOPHENOLATE MOFETIL
     Indication: Product used for unknown indication
     Dosage: UNK
     Route: 065
  4. CYCLOSPORINE [Suspect]
     Active Substance: CYCLOSPORINE
     Indication: Prophylaxis
     Dosage: UNK
     Route: 042
  5. CYCLOSPORINE [Suspect]
     Active Substance: CYCLOSPORINE
     Indication: Prophylaxis against graft versus host disease
  6. NALBUPHINE [Suspect]
     Active Substance: NALBUPHINE
     Indication: Pain
     Dosage: UNK, INFUSION
     Route: 042
  7. NALBUPHINE [Suspect]
     Active Substance: NALBUPHINE
     Dosage: UNK
     Route: 065
  8. CIDOFOVIR [Suspect]
     Active Substance: CIDOFOVIR
     Indication: Adenovirus infection
     Dosage: UNK
     Route: 043
  9. CIDOFOVIR [Suspect]
     Active Substance: CIDOFOVIR
     Indication: Adenoviral haemorrhagic cystitis
     Dosage: UNK (TOPICAL)
     Route: 050
  10. CIDOFOVIR [Suspect]
     Active Substance: CIDOFOVIR
     Indication: Viral haemorrhagic cystitis
     Dosage: UNK
     Route: 042
  11. CIDOFOVIR [Suspect]
     Active Substance: CIDOFOVIR
     Indication: Viraemia
     Dosage: 5 DOSAGE FORM (ON DAYS +19, +27, +34, +41+48-TOTAL)
     Route: 042
  12. CIDOFOVIR [Suspect]
     Active Substance: CIDOFOVIR
     Indication: BK virus infection
     Dosage: ON DAYS +19, +27, +34, +41+48-TOTAL
     Route: 042
  13. FOSCARNET SODIUM [Suspect]
     Active Substance: FOSCARNET SODIUM
     Indication: Cytomegalovirus infection
     Dosage: UNK
     Route: 042
  14. FOSCARNET SODIUM [Suspect]
     Active Substance: FOSCARNET SODIUM
     Indication: Cytomegalovirus infection reactivation
  15. GANCICLOVIR [Suspect]
     Active Substance: GANCICLOVIR
     Indication: Cytomegalovirus viraemia
     Dosage: UNK
     Route: 065
  16. CIPROFLOXACIN [Concomitant]
     Active Substance: CIPROFLOXACIN
     Indication: BK virus infection
     Dosage: UNK
     Route: 065
  17. CIPROFLOXACIN [Concomitant]
     Active Substance: CIPROFLOXACIN
     Indication: Viruria
     Dosage: UNK
     Route: 065
  18. NALBUPHINE [Concomitant]
     Active Substance: NALBUPHINE
     Indication: Pain
     Dosage: UNK
     Route: 065
  19. NALBUPHINE [Concomitant]
     Active Substance: NALBUPHINE
     Dosage: UNK
     Route: 065

REACTIONS (6)
  - Renal impairment [Recovering/Resolving]
  - Haematuria [Recovered/Resolved]
  - Diarrhoea [Unknown]
  - Off label use [Unknown]
  - Drug ineffective [Recovered/Resolved]
  - Acute kidney injury [Not Recovered/Not Resolved]
